FAERS Safety Report 25206082 (Version 1)
Quarter: 2025Q2

REPORT INFORMATION
  Report Type: Report from Study
  Country: IN (occurrence: IN)
  Receive Date: 20250417
  Receipt Date: 20250417
  Transmission Date: 20250717
  Serious: Yes (Other)
  Sender: RANBAXY
  Company Number: IN-SUN PHARMACEUTICAL INDUSTRIES LTD.-2025R1-503494

PATIENT
  Age: 64 Year
  Sex: Male

DRUGS (8)
  1. DONEPEZIL [Suspect]
     Active Substance: DONEPEZIL
     Indication: Dementia Alzheimer^s type
     Dosage: 10 MILLIGRAM, QD
     Route: 065
  2. DONEPEZIL [Suspect]
     Active Substance: DONEPEZIL
     Indication: Dementia
  3. DONEPEZIL [Suspect]
     Active Substance: DONEPEZIL
     Indication: Seizure
  4. DONEPEZIL [Suspect]
     Active Substance: DONEPEZIL
     Indication: Alcoholism
  5. QUETIAPINE [Suspect]
     Active Substance: QUETIAPINE
     Indication: Dementia Alzheimer^s type
     Dosage: 150 MILLIGRAM, QD
     Route: 065
  6. QUETIAPINE [Suspect]
     Active Substance: QUETIAPINE
     Indication: Dementia
  7. QUETIAPINE [Suspect]
     Active Substance: QUETIAPINE
     Indication: Seizure
  8. QUETIAPINE [Suspect]
     Active Substance: QUETIAPINE
     Indication: Alcoholism

REACTIONS (1)
  - Condition aggravated [Unknown]
